FAERS Safety Report 15561311 (Version 1)
Quarter: 2018Q4

REPORT INFORMATION
  Report Type: Spontaneous
  Country: US (occurrence: US)
  Receive Date: 20181029
  Receipt Date: 20181029
  Transmission Date: 20190205
  Serious: No
  Sender: FDA-Public Use
  Company Number: US-TEVA-2018-US-970455

PATIENT
  Age: 82 Year
  Sex: Male

DRUGS (1)
  1. AUSTEDO [Suspect]
     Active Substance: DEUTETRABENAZINE
     Indication: TARDIVE DYSKINESIA
     Dosage: TITRATED UP TO 18 MG
     Route: 065

REACTIONS (3)
  - Listless [Unknown]
  - Weight decreased [Unknown]
  - Decreased appetite [Unknown]
